FAERS Safety Report 9198460 (Version 1)
Quarter: 2013Q1

REPORT INFORMATION
  Report Type: Spontaneous
  Country: US (occurrence: None)
  Receive Date: 20130327
  Receipt Date: 20130327
  Transmission Date: 20140127
  Serious: Yes (Other)
  Sender: FDA-Public Use
  Company Number: None

PATIENT
  Age: 72 Year
  Sex: Male

DRUGS (7)
  1. TAMIFLU 75MG CAP GENETECH [Suspect]
     Indication: ANTIVIRAL PROPHYLAXIS
     Route: 048
     Dates: start: 20130309, end: 20130319
  2. TRAZODONE [Concomitant]
  3. LORAZEPAM [Concomitant]
  4. RANITIDINE [Concomitant]
  5. MULTIVITAMIN W/MINERAL [Concomitant]
  6. VITAMIN D [Concomitant]
  7. BISACODYL TAB [Concomitant]

REACTIONS (1)
  - Convulsion [None]
